FAERS Safety Report 9553458 (Version 1)
Quarter: 2013Q2

REPORT INFORMATION
  Report Type: Spontaneous
  Country: US (occurrence: None)
  Receive Date: 20130425
  Receipt Date: 20130425
  Transmission Date: 20140414
  Serious: Yes (Hospitalization)
  Sender: FDA-Public Use
  Company Number: 136340

PATIENT
  Age: 40 Year
  Sex: Male
  Weight: 93.9 kg

DRUGS (2)
  1. ADRIAMYCIN [Suspect]
     Indication: HODGKIN^S DISEASE
     Route: 042
     Dates: start: 20120405, end: 20120421
  2. VINBLASTINE SULFATE [Suspect]
     Indication: HODGKIN^S DISEASE
     Route: 042
     Dates: start: 20120405, end: 20120421

REACTIONS (1)
  - Bacteraemia [None]
